FAERS Safety Report 8474367-1 (Version None)
Quarter: 2012Q2

REPORT INFORMATION
  Report Type: 
  Country: None (occurrence: None)
  Receive Date: 20120628
  Receipt Date: 20111031
  Transmission Date: 20120825
  Serious: Yes (Death)
  Sender: FDA-Public Use
  Company Number: US-MYLANLABS-2011S1022449

PATIENT
  Age: 47 Year
  Sex: Male

DRUGS (16)
  1. CLOZAPINE [Suspect]
     Route: 048
     Dates: start: 20021008
  2. WELLBUTRIN [Concomitant]
  3. VITAMIN D [Concomitant]
  4. NIASPAN [Concomitant]
  5. REQUIP [Concomitant]
  6. RISPERIDONE [Concomitant]
  7. ASPIRIN [Concomitant]
  8. ZYPREXA [Concomitant]
  9. CLOZAPINE [Suspect]
     Route: 048
     Dates: start: 20021008
  10. FLUOXETINE [Concomitant]
  11. MOM [Concomitant]
  12. PROMETHAZINE [Concomitant]
  13. BUSPIRONE HCL [Concomitant]
  14. LIPITOR [Concomitant]
  15. POLYETHYLENE GLYCOL [Concomitant]
  16. OMEPRAZOLE [Concomitant]

REACTIONS (1)
  - DEATH [None]
